FAERS Safety Report 5010511-6 (Version None)
Quarter: 2006Q2

REPORT INFORMATION
  Report Type: 
  Country: None (occurrence: None)
  Receive Date: 20060525
  Receipt Date: 20051028
  Transmission Date: 20061013
  Serious: No
  Sender: FDA-Public Use
  Company Number: US-GLAXOSMITHKLINE-A0580084A

PATIENT
  Sex: Male

DRUGS (2)
  1. BACTROBAN [Suspect]
     Indication: DRUG USE FOR UNKNOWN INDICATION
     Route: 045
  2. UNKNOWN [Concomitant]

REACTIONS (1)
  - DRUG INEFFECTIVE [None]
